FAERS Safety Report 25761061 (Version 1)
Quarter: 2025Q3

REPORT INFORMATION
  Report Type: Spontaneous
  Country: US (occurrence: US)
  Receive Date: 20250904
  Receipt Date: 20250904
  Transmission Date: 20251020
  Serious: No
  Sender: ELI LILLY AND COMPANY
  Company Number: US-ELI_LILLY_AND_COMPANY-US202508025691

PATIENT

DRUGS (3)
  1. TIRZEPATIDE [Suspect]
     Active Substance: TIRZEPATIDE
     Indication: Product used for unknown indication
     Route: 065
  2. LAXATIVE WITH SENNA [Concomitant]
     Indication: Gastrointestinal motility disorder
     Route: 065
  3. STOOL SOFTENER (DOCUSATE) [Concomitant]
     Active Substance: DOCUSATE
     Indication: Gastrointestinal motility disorder
     Route: 065

REACTIONS (2)
  - Gastrointestinal motility disorder [Unknown]
  - Abdominal pain [Unknown]
